FAERS Safety Report 7307738-7 (Version None)
Quarter: 2011Q1

REPORT INFORMATION
  Report Type: 
  Country: None (occurrence: None)
  Receive Date: 20110223
  Receipt Date: 20110210
  Transmission Date: 20110831
  Serious: Yes (Hospitalization)
  Sender: FDA-Public Use
  Company Number: DE-ELI_LILLY_AND_COMPANY-DE201102002958

PATIENT
  Sex: Female

DRUGS (2)
  1. ZYPADHERA [Suspect]
     Indication: SCHIZOPHRENIA, CATATONIC TYPE
     Dosage: 405 MG, UNK
     Route: 030
     Dates: start: 20090101, end: 20110205
  2. TRAZODONE HCL [Concomitant]
     Dosage: 100 MG, UNK
     Dates: start: 20090101, end: 20110201

REACTIONS (1)
  - LEUKOPENIA [None]
